FAERS Safety Report 10728138 (Version 3)
Quarter: 2015Q1

REPORT INFORMATION
  Report Type: Report from Study
  Country: AU (occurrence: AU)
  Receive Date: 20150121
  Receipt Date: 20150306
  Transmission Date: 20150721
  Serious: Yes (Hospitalization, Other)
  Sender: FDA-Public Use
  Company Number: AU-ABBVIE-15P-008-1332515-00

PATIENT
  Age: 58 Year
  Sex: Female
  Weight: 77.1 kg

DRUGS (7)
  1. ABT-333 [Suspect]
     Active Substance: DASABUVIR
     Indication: HEPATITIS C
     Route: 048
     Dates: start: 20141118, end: 20150210
  2. ABT-450/RITONAVIR/ABT-267 [Suspect]
     Active Substance: OMBITASVIR\PARITAPREVIR\RITONAVIR
     Indication: HEPATITIS C
     Dosage: 150/100/25 MG QD
     Route: 048
     Dates: start: 20141118
  3. PROPANOLOL [Concomitant]
     Active Substance: PROPRANOLOL HYDROCHLORIDE
     Indication: PORTAL HYPERTENSION
     Route: 048
  4. SPIRONOLACTONE. [Concomitant]
     Active Substance: SPIRONOLACTONE
     Indication: PORTAL HYPERTENSION
     Route: 048
  5. RIBAVIRIN. [Suspect]
     Active Substance: RIBAVIRIN
     Route: 048
     Dates: start: 20141218, end: 20150113
  6. RIBAVIRIN. [Suspect]
     Active Substance: RIBAVIRIN
     Indication: HEPATITIS C
     Dosage: DIVIDED DOSES DAILY (TOTAL DAILY DOSE 1000MG)
     Route: 048
     Dates: start: 20141118, end: 20141218
  7. RIBAVIRIN. [Suspect]
     Active Substance: RIBAVIRIN
     Route: 048
     Dates: start: 20150114, end: 20150210

REACTIONS (10)
  - Haemolysis [Recovering/Resolving]
  - Pancreatitis [Unknown]
  - Cholangitis [Unknown]
  - Abdominal pain upper [Recovering/Resolving]
  - Blood bilirubin increased [Recovering/Resolving]
  - Biliary colic [Recovered/Resolved]
  - Pyrexia [Recovered/Resolved]
  - Biliary colic [Unknown]
  - Lethargy [Unknown]
  - Pain [Recovered/Resolved]

NARRATIVE: CASE EVENT DATE: 20150112
